FAERS Safety Report 4342836-1 (Version None)
Quarter: 2004Q2

REPORT INFORMATION
  Report Type: 
  Country: None (occurrence: None)
  Receive Date: 20040416
  Receipt Date: 20040405
  Transmission Date: 20050107
  Serious: Yes (Hospitalization)
  Sender: FDA-Public Use
  Company Number: JP-JNJFOC-20040300290

PATIENT
  Age: 81 Year
  Sex: Female

DRUGS (6)
  1. OFLOXACIN [Suspect]
     Indication: LUNG INFECTION
     Dosage: 1 DOSE (S), 1 IN 1 DAY, ORAL
     Route: 048
     Dates: start: 20031206
  2. CORDARONE [Suspect]
     Dosage: 5 IN 1 WEEK, ORAL
     Route: 048
     Dates: start: 20031128
  3. PREVISCAN (FLUINDIONE) TABLETS [Suspect]
     Dosage: 10 MG, ORAL
     Route: 048
     Dates: start: 20030715, end: 20031208
  4. PRAVASTATIN SODIUM [Suspect]
     Dosage: 1 IU, ORAL
     Route: 048
     Dates: start: 20031128
  5. ATACAND [Concomitant]
  6. NICARDIPINE HCL [Concomitant]

REACTIONS (8)
  - CHOLESTASIS [None]
  - CYTOLYTIC HEPATITIS [None]
  - DRUG INTERACTION [None]
  - DYSPNOEA EXACERBATED [None]
  - INTERNATIONAL NORMALISED RATIO INCREASED [None]
  - LIVER FUNCTION TEST ABNORMAL [None]
  - PROTHROMBIN TIME RATIO DECREASED [None]
  - SELF-MEDICATION [None]
